FAERS Safety Report 4460438-3 (Version None)
Quarter: 2004Q3

REPORT INFORMATION
  Report Type: 
  Country: None (occurrence: None)
  Receive Date: 20040928
  Receipt Date: 20040712
  Transmission Date: 20050211
  Serious: No
  Sender: FDA-Public Use
  Company Number: US-GLAXOSMITHKLINE-A0517867A

PATIENT
  Age: 72 Year
  Sex: Female

DRUGS (8)
  1. SEREVENT [Suspect]
     Indication: ASTHMA
     Dosage: 1PUFF TWICE PER DAY
     Route: 055
  2. FLOVENT [Concomitant]
  3. ALBUTEROL [Concomitant]
  4. DAILY VITAMIN [Concomitant]
  5. ATROVENT [Concomitant]
  6. EVISTA [Concomitant]
  7. MIACALCIN [Concomitant]
  8. OSCAL [Concomitant]

REACTIONS (2)
  - DRUG INEFFECTIVE [None]
  - DYSGEUSIA [None]
